FAERS Safety Report 25304930 (Version 1)
Quarter: 2025Q2

REPORT INFORMATION
  Report Type: Report from Study
  Country: US (occurrence: US)
  Receive Date: 20250513
  Receipt Date: 20250513
  Transmission Date: 20250716
  Serious: Yes (Other)
  Sender: ALEXION PHARMACEUTICALS
  Company Number: US-AstraZeneca-CH-00865590A

PATIENT
  Weight: 87.1 kg

DRUGS (2)
  1. OLAPARIB [Suspect]
     Active Substance: OLAPARIB
     Indication: Breast cancer
     Dosage: 300 MILLIGRAM, BID
  2. OXYCODONE [Concomitant]
     Active Substance: OXYCODONE
     Route: 065

REACTIONS (14)
  - Urinary tract infection [Unknown]
  - Laboratory test abnormal [Unknown]
  - Pain [Unknown]
  - Decreased appetite [Unknown]
  - Nausea [Recovered/Resolved]
  - Diarrhoea [Unknown]
  - Constipation [Unknown]
  - Hot flush [Unknown]
  - Condition aggravated [Unknown]
  - Cystitis [Unknown]
  - Back pain [Unknown]
  - Red blood cell count decreased [Unknown]
  - White blood cell count decreased [Unknown]
  - Multiple sclerosis [Unknown]
